FAERS Safety Report 26207579 (Version 1)
Quarter: 2025Q4

REPORT INFORMATION
  Report Type: Spontaneous
  Country: US (occurrence: US)
  Receive Date: 20251229
  Receipt Date: 20251229
  Transmission Date: 20260117
  Serious: Yes (Life-Threatening, Hospitalization, Other)
  Sender: DR REDDYS
  Company Number: US-DRL-USA-USA/2025/12/019877

PATIENT
  Age: 51 Year
  Sex: Male

DRUGS (2)
  1. METOPROLOL SUCCINATE [Suspect]
     Active Substance: METOPROLOL SUCCINATE
     Indication: Stress
     Dosage: TAKEN THREE EXTRA DOSES OF METOPROLOL SUCCINATE 200MG EARLIER IN THE DAY
  2. METOPROLOL SUCCINATE [Suspect]
     Active Substance: METOPROLOL SUCCINATE
     Indication: Anxiety

REACTIONS (8)
  - Unresponsive to stimuli [Recovered/Resolved]
  - Acute kidney injury [Recovered/Resolved]
  - Acute respiratory failure [Recovered/Resolved]
  - Haemodynamic instability [Recovered/Resolved]
  - Acute kidney injury [Recovered/Resolved]
  - Nodal arrhythmia [Recovered/Resolved]
  - Overdose [Recovered/Resolved]
  - Product use in unapproved indication [Unknown]
